FAERS Safety Report 8577711-X (Version None)
Quarter: 2012Q3

REPORT INFORMATION
  Report Type: 
  Country: None (occurrence: None)
  Receive Date: 20120808
  Receipt Date: 20120727
  Transmission Date: 20120928
  Serious: Yes (Hospitalization, Other)
  Sender: FDA-Public Use
  Company Number: BR-AMGEN-BRASP2012048719

PATIENT
  Age: 41 Year
  Sex: Male
  Weight: 108 kg

DRUGS (7)
  1. MESALAMINE [Concomitant]
     Indication: DIARRHOEA
     Dosage: UNK UNK, UNK
  2. METFORMIN HYDROCHLORIDE [Concomitant]
     Dosage: UNK UNK, UNK
  3. CLONAZEPAM [Concomitant]
     Dosage: UNK UNK, UNK
  4. LEVOTHYROXINE SODIUM [Concomitant]
     Dosage: UNK UNK, UNK
  5. PONDERA [Concomitant]
     Dosage: UNK UNK, UNK
  6. ENBREL [Suspect]
     Indication: ANKYLOSING SPONDYLITIS
     Dosage: 25 MG, 1X/WEEK
     Route: 058
     Dates: start: 20080715
  7. DIAZEPAM [Concomitant]
     Dosage: UNK UNK, UNK

REACTIONS (3)
  - LUNG NEOPLASM [None]
  - LYMPHOID TISSUE HYPERPLASIA [None]
  - ANKYLOSING SPONDYLITIS [None]
